FAERS Safety Report 17904973 (Version 1)
Quarter: 2020Q2

REPORT INFORMATION
  Report Type: Spontaneous
  Country: US (occurrence: US)
  Receive Date: 20200616
  Receipt Date: 20200616
  Transmission Date: 20200714
  Serious: No
  Sender: FDA-Public Use
  Company Number: US-ROCHE-2346645

PATIENT
  Age: 3 Year
  Sex: Female
  Weight: 10 kg

DRUGS (2)
  1. ACTEMRA [Suspect]
     Active Substance: TOCILIZUMAB
     Indication: MORPHOEA
     Route: 042
     Dates: start: 20190626
  2. ACTEMRA [Suspect]
     Active Substance: TOCILIZUMAB
     Indication: SCLERODERMA

REACTIONS (5)
  - Off label use [Unknown]
  - Pyrexia [Unknown]
  - Diarrhoea [Unknown]
  - Incorrect drug administration rate [Unknown]
  - Intentional product use issue [Unknown]

NARRATIVE: CASE EVENT DATE: 20190627
